FAERS Safety Report 9052676 (Version 1)
Quarter: 2013Q1

REPORT INFORMATION
  Report Type: Spontaneous
  Country: US (occurrence: US)
  Receive Date: 20130207
  Receipt Date: 20130207
  Transmission Date: 20140127
  Serious: No
  Sender: FDA-Public Use
  Company Number: US-PFIZER INC-2013051262

PATIENT
  Age: 55 Year
  Sex: Male
  Weight: 90.7 kg

DRUGS (3)
  1. EFFEXOR XR [Suspect]
     Dosage: 225 MG, UNK
     Route: 048
  2. EFFEXOR XR [Suspect]
     Dosage: 150 MG, UNK
     Route: 048
  3. EFFEXOR XR [Suspect]
     Dosage: 75 MG, UNK

REACTIONS (1)
  - Drug intolerance [Unknown]
